FAERS Safety Report 11374725 (Version 1)
Quarter: 2015Q3

REPORT INFORMATION
  Report Type: Spontaneous
  Country: US (occurrence: US)
  Receive Date: 20150813
  Receipt Date: 20150813
  Transmission Date: 20151125
  Serious: No
  Sender: FDA-Public Use
  Company Number: US-B.I. PHARMACEUTICALS,INC./RIDGEFIELD-2015-BI-41689BP

PATIENT
  Age: 81 Year
  Sex: Female
  Weight: 60 kg

DRUGS (1)
  1. ATROVENT [Suspect]
     Active Substance: IPRATROPIUM BROMIDE
     Indication: BRONCHIECTASIS
     Dosage: 136 MCG
     Route: 055
     Dates: start: 20150724

REACTIONS (7)
  - Decreased appetite [Unknown]
  - Eating disorder [Unknown]
  - Dizziness [Unknown]
  - Oropharyngeal pain [Unknown]
  - Off label use [Unknown]
  - Muscle spasms [Unknown]
  - Dry mouth [Unknown]

NARRATIVE: CASE EVENT DATE: 201507
